FAERS Safety Report 16208599 (Version 1)
Quarter: 2019Q2

REPORT INFORMATION
  Report Type: Spontaneous
  Country: GR (occurrence: GR)
  Receive Date: 20190417
  Receipt Date: 20190417
  Transmission Date: 20190711
  Serious: Yes (Other)
  Sender: FDA-Public Use
  Company Number: GR-TAKEDA-2019TEU004361

PATIENT
  Age: 56 Year
  Sex: Female
  Weight: 69 kg

DRUGS (4)
  1. DELTIUS [Concomitant]
     Active Substance: CHOLECALCIFEROL
     Dosage: UNK, 1/WEEK
     Route: 048
     Dates: start: 20160630
  2. TIROSINT [Concomitant]
     Active Substance: LEVOTHYROXINE SODIUM
     Dosage: UNK, QD
     Route: 048
     Dates: start: 20160630, end: 20190329
  3. PITAVA [Concomitant]
     Active Substance: PITAVASTATIN
     Dosage: 4 MILLIGRAM, QD
     Route: 048
     Dates: start: 20160630, end: 20190329
  4. ACTOS [Suspect]
     Active Substance: PIOGLITAZONE HYDROCHLORIDE
     Indication: PRODUCT USED FOR UNKNOWN INDICATION
     Dosage: 30 MILLIGRAM, QD
     Route: 048
     Dates: start: 20151001

REACTIONS (1)
  - Extrasystoles [Unknown]

NARRATIVE: CASE EVENT DATE: 20190301
